FAERS Safety Report 9099068 (Version 2)
Quarter: 2013Q1

REPORT INFORMATION
  Report Type: Report from Study
  Country: AU (occurrence: AU)
  Receive Date: 20130214
  Receipt Date: 20130314
  Transmission Date: 20140127
  Serious: Yes (Life-Threatening, Hospitalization, Other)
  Sender: FDA-Public Use
  Company Number: AU-ROCHE-1191046

PATIENT
  Age: 77 Year
  Sex: Male

DRUGS (6)
  1. ACTEMRA [Suspect]
     Indication: RHEUMATOID ARTHRITIS
     Route: 042
     Dates: start: 20101004
  2. ACTEMRA [Suspect]
     Route: 042
     Dates: start: 20100124, end: 20100124
  3. METHOTREXATE [Concomitant]
     Route: 048
     Dates: start: 19920101
  4. PREDNISONE [Concomitant]
     Route: 048
     Dates: start: 19920101
  5. ARAVA [Concomitant]
  6. ETANERCEPT [Concomitant]

REACTIONS (5)
  - Pneumonia [Recovering/Resolving]
  - Cyst [Recovering/Resolving]
  - Staphylococcal sepsis [Recovered/Resolved]
  - Extradural abscess [Recovered/Resolved]
  - Arthritis [Recovered/Resolved]
